FAERS Safety Report 18918178 (Version 1)
Quarter: 2021Q1

REPORT INFORMATION
  Report Type: Spontaneous
  Country: US (occurrence: US)
  Receive Date: 20210220
  Receipt Date: 20210220
  Transmission Date: 20210420
  Serious: Yes (Hospitalization)
  Sender: FDA-Public Use
  Company Number: US-LUPIN PHARMACEUTICALS INC.-2021-02021

PATIENT
  Age: 38 Year
  Sex: Male

DRUGS (7)
  1. MARCAINE [Suspect]
     Active Substance: BUPIVACAINE HYDROCHLORIDE
     Indication: SPINAL ANAESTHESIA
     Dosage: 2.5 MILLILITER (SPINAL ANAESTHESIA WAS ADMINISTERED THROUGH A WHITACRE 25G NEEDLE USING THE MIDLINE
     Route: 037
  2. MARCAINE [Suspect]
     Active Substance: BUPIVACAINE HYDROCHLORIDE
     Indication: NEUROMUSCULAR BLOCKING THERAPY
     Dosage: 25 MILLILITER (SPINAL ANAESTHESIA WAS ADMINISTERED THROUGH A WHITACRE 25G NEEDLE USING THE MIDLINE A
     Route: 037
  3. SUBLIMAZE [Suspect]
     Active Substance: FENTANYL CITRATE
     Indication: SPINAL ANAESTHESIA
     Dosage: 20 MICROGRAM (SPINAL ANAESTHESIA WAS ADMINISTERED THROUGH A WHITACRE 25G NEEDLE USING THE MIDLINE AP
     Route: 037
  4. EPINEPHRINE. [Concomitant]
     Active Substance: EPINEPHRINE
     Indication: PRODUCT USED FOR UNKNOWN INDICATION
     Dosage: 200 MICROGRAM (ADMINISTERED THROUGH A WHITACRE 25G NEEDLE USING THE MIDLINE APPROACH AT THE L3?4 LEV
     Route: 037
  5. CLONIDINE. [Suspect]
     Active Substance: CLONIDINE
     Indication: NEUROMUSCULAR BLOCKING THERAPY
     Dosage: UNK (1.67 MCG/ML; SPINAL ANAESTHESIA WAS ADMINISTERED THROUGH A WHITACRE 25G NEEDLE USING THE MIDLIN
     Route: 037
  6. EPINEPHRINE. [Concomitant]
     Active Substance: EPINEPHRINE
     Dosage: UNK (1: 200K EPINEPHRINE TO RIGHT PSOAS COMPARTMENT; ADMINISTERED THROUGH A WHITACRE 25G NEEDLE USIN
     Route: 037
  7. PROPOFOL. [Concomitant]
     Active Substance: PROPOFOL
     Indication: SEDATION
     Dosage: UNK (MONITORED ANESTHESIA CARE (MAC) SEDATION)
     Route: 016

REACTIONS (2)
  - Lumbosacral radiculopathy [Recovering/Resolving]
  - Anaesthetic complication [Recovering/Resolving]
